FAERS Safety Report 6548702-5 (Version None)
Quarter: 2010Q1

REPORT INFORMATION
  Report Type: 
  Country: None (occurrence: None)
  Receive Date: 20100124
  Receipt Date: 20091016
  Transmission Date: 20100710
  Serious: No
  Sender: FDA-Public Use
  Company Number: US-ALLERGAN-0914285US

PATIENT
  Sex: Female

DRUGS (1)
  1. RESTASIS [Suspect]
     Indication: DRUG USE FOR UNKNOWN INDICATION
     Dosage: UNK
     Route: 047

REACTIONS (8)
  - ADVERSE EVENT [None]
  - BURNING SENSATION [None]
  - DRY SKIN [None]
  - EYE IRRITATION [None]
  - EYE PRURITUS [None]
  - MIGRAINE [None]
  - PRURITUS [None]
  - VISION BLURRED [None]
